FAERS Safety Report 13400779 (Version 3)
Quarter: 2017Q3

REPORT INFORMATION
  Report Type: Report from Study
  Country: US (occurrence: US)
  Receive Date: 20170404
  Receipt Date: 20170710
  Transmission Date: 20171127
  Serious: Yes (Death, Hospitalization, Other)
  Sender: FDA-Public Use
  Company Number: US-GILEAD-2017-0265363

PATIENT
  Age: 73 Year
  Sex: Female

DRUGS (17)
  1. XARELTO [Concomitant]
     Active Substance: RIVAROXABAN
  2. LISINOPRIL. [Concomitant]
     Active Substance: LISINOPRIL
  3. XANAX [Concomitant]
     Active Substance: ALPRAZOLAM
  4. AMBRISENTAN [Suspect]
     Active Substance: AMBRISENTAN
     Indication: PULMONARY HYPERTENSION
     Dosage: 5 MG, QD
     Route: 065
     Dates: start: 20170308, end: 20170621
  5. METOPROLOL SUCCINATE. [Concomitant]
     Active Substance: METOPROLOL SUCCINATE
  6. TRAZODONE HYDROCHLORIDE. [Concomitant]
     Active Substance: TRAZODONE HYDROCHLORIDE
  7. ZETIA [Concomitant]
     Active Substance: EZETIMIBE
  8. FLUOXETINE HCL [Concomitant]
     Active Substance: FLUOXETINE HYDROCHLORIDE
  9. SILDENAFIL. [Concomitant]
     Active Substance: SILDENAFIL
  10. GABAPENTIN. [Concomitant]
     Active Substance: GABAPENTIN
  11. ATORVASTATIN CALCIUM. [Concomitant]
     Active Substance: ATORVASTATIN CALCIUM
  12. LORATADINE. [Concomitant]
     Active Substance: LORATADINE
  13. FISH OIL [Concomitant]
     Active Substance: FISH OIL
  14. VITAMINS WITH MINERALS [Concomitant]
     Active Substance: MINERALS\VITAMINS
  15. ASPIR 81 [Concomitant]
  16. FUROSEMIDE. [Concomitant]
     Active Substance: FUROSEMIDE
  17. POTASSIUM [Concomitant]
     Active Substance: POTASSIUM

REACTIONS (3)
  - Intestinal obstruction [Fatal]
  - Cardiac failure congestive [Recovered/Resolved]
  - Renal failure [Unknown]

NARRATIVE: CASE EVENT DATE: 20170511
